FAERS Safety Report 10459443 (Version 1)
Quarter: 2014Q3

REPORT INFORMATION
  Report Type: Spontaneous
  Country: US (occurrence: US)
  Receive Date: 20140917
  Receipt Date: 20140917
  Transmission Date: 20150326
  Serious: No
  Sender: FDA-Public Use
  Company Number: US-PFIZER INC-2014257091

PATIENT
  Age: 63 Year
  Sex: Male
  Weight: 129 kg

DRUGS (3)
  1. ASPIRIN. [Concomitant]
     Active Substance: ASPIRIN
     Dosage: UNK
     Dates: start: 20140815
  2. CELEBREX [Suspect]
     Active Substance: CELECOXIB
     Indication: KNEE OPERATION
     Dosage: 100 MG, 2X/DAY
     Dates: start: 20140815, end: 20140825
  3. HYDROCODONE [Concomitant]
     Active Substance: HYDROCODONE
     Dosage: UNK
     Dates: start: 20140815

REACTIONS (2)
  - Nightmare [Recovered/Resolved]
  - Night sweats [Recovered/Resolved]

NARRATIVE: CASE EVENT DATE: 201408
